FAERS Safety Report 20782447 (Version 1)
Quarter: 2022Q2

REPORT INFORMATION
  Report Type: Spontaneous
  Country: PE (occurrence: PE)
  Receive Date: 20220504
  Receipt Date: 20220504
  Transmission Date: 20220720
  Serious: Yes (Other)
  Sender: FDA-Public Use
  Company Number: PE-ROCHE-3083480

PATIENT
  Age: 76 Year

DRUGS (1)
  1. MIRCERA [Suspect]
     Active Substance: METHOXY POLYETHYLENE GLYCOL-EPOETIN BETA
     Indication: Anaemia
     Dosage: FREQUENCY WAS NOT REPORTED
     Route: 042

REACTIONS (2)
  - Renal failure [Unknown]
  - Haemoglobin decreased [Unknown]
